FAERS Safety Report 6644263-0 (Version None)
Quarter: 2010Q1

REPORT INFORMATION
  Report Type: 
  Country: None (occurrence: None)
  Receive Date: 20100319
  Receipt Date: 20100319
  Transmission Date: 20100710
  Serious: Yes (Hospitalization)
  Sender: FDA-Public Use
  Company Number: None

PATIENT
  Age: 71 Year
  Sex: Female
  Weight: 34.0198 kg

DRUGS (4)
  1. DILAUDID [Suspect]
     Indication: PAIN
     Dosage: 2 MG ? PO, RECENT
     Route: 048
  2. VALIUM [Concomitant]
  3. SKELAXIN [Concomitant]
  4. NEURONTIN [Concomitant]

REACTIONS (4)
  - FALL [None]
  - MENTAL STATUS CHANGES [None]
  - OVERDOSE [None]
  - URINARY TRACT INFECTION [None]
